FAERS Safety Report 22654399 (Version 1)
Quarter: 2023Q2

REPORT INFORMATION
  Report Type: Spontaneous
  Country: US (occurrence: None)
  Receive Date: 20230628
  Receipt Date: 20230628
  Transmission Date: 20230722
  Serious: Yes (Death)
  Sender: FDA-Public Use
  Company Number: None

PATIENT
  Age: 10 Year
  Sex: Female
  Weight: 45.4 kg

DRUGS (3)
  1. RYLAZE [Suspect]
     Active Substance: ASPARAGINASE ERWINIA CHRYSANTHEMI (RECOMBINANT)-RYWN
     Indication: Acute lymphocytic leukaemia
     Dosage: OTHER FREQUENCY : THREE TIMES WEEKLY;?
     Route: 030
     Dates: start: 20230607, end: 20230616
  2. Cytarabine  (subcutaneous) [Concomitant]
     Dates: start: 20230607, end: 20230610
  3. MERCAPTOPURINE [Concomitant]
     Active Substance: MERCAPTOPURINE
     Dates: start: 20230531, end: 20230613

REACTIONS (10)
  - Pain in extremity [None]
  - Groin pain [None]
  - Lymphadenopathy [None]
  - Septic shock [None]
  - Necrotising fasciitis [None]
  - Cardiac arrest [None]
  - Escherichia test positive [None]
  - Enterobacter test positive [None]
  - Culture wound positive [None]
  - Blood culture positive [None]

NARRATIVE: CASE EVENT DATE: 20230616
